FAERS Safety Report 9103216 (Version 1)
Quarter: 2013Q1

REPORT INFORMATION
  Report Type: Spontaneous
  Country: US (occurrence: US)
  Receive Date: 20130219
  Receipt Date: 20130219
  Transmission Date: 20140127
  Serious: No
  Sender: FDA-Public Use
  Company Number: US-PFIZER INC-2013061369

PATIENT
  Sex: Female

DRUGS (4)
  1. LYRICA [Suspect]
     Indication: NEUROPATHY PERIPHERAL
     Dosage: 50 MG, DAILY
  2. LYRICA [Suspect]
     Dosage: 100 MG, DAILY
  3. LYRICA [Suspect]
     Dosage: 150 MG, DAILY
  4. LYRICA [Suspect]
     Dosage: 100 MG, 2X/DAY

REACTIONS (1)
  - Somnolence [Unknown]
